FAERS Safety Report 6868012-6 (Version None)
Quarter: 2010Q3

REPORT INFORMATION
  Report Type: 
  Country: None (occurrence: None)
  Receive Date: 20100722
  Receipt Date: 20080702
  Transmission Date: 20110219
  Serious: No
  Sender: FDA-Public Use
  Company Number: US-PFIZER INC-2008040811

PATIENT
  Sex: Female
  Weight: 57.15 kg

DRUGS (2)
  1. CHANTIX [Suspect]
     Indication: SMOKING CESSATION THERAPY
     Dates: start: 20080326
  2. TYLENOL [Concomitant]

REACTIONS (3)
  - NAUSEA [None]
  - STRESS [None]
  - THERAPEUTIC RESPONSE UNEXPECTED [None]
